FAERS Safety Report 7114447-6 (Version None)
Quarter: 2010Q4

REPORT INFORMATION
  Report Type: 
  Country: None (occurrence: None)
  Receive Date: 20101119
  Receipt Date: 20101105
  Transmission Date: 20110411
  Serious: Yes (Hospitalization)
  Sender: FDA-Public Use
  Company Number: US-ELI_LILLY_AND_COMPANY-US201011002139

PATIENT
  Sex: Female

DRUGS (2)
  1. SYMBYAX [Suspect]
     Indication: DEPRESSION
     Dosage: 1 D/F, OTHER
     Route: 065
  2. SYMBYAX [Suspect]
     Dosage: 1 D/F, OTHER
     Route: 065

REACTIONS (2)
  - CEREBROVASCULAR ACCIDENT [None]
  - CONVULSION [None]
